FAERS Safety Report 14279359 (Version 1)
Quarter: 2017Q4

REPORT INFORMATION
  Report Type: Spontaneous
  Country: JP (occurrence: JP)
  Receive Date: 20171212
  Receipt Date: 20171212
  Transmission Date: 20180321
  Serious: Yes (Other)
  Sender: FDA-Public Use
  Company Number: JP-009507513-1712JPN003976

PATIENT

DRUGS (3)
  1. BEVACIZUMAB. [Suspect]
     Active Substance: BEVACIZUMAB
     Indication: BRAIN NEOPLASM
     Dosage: MEDIAN NUMBER OF CYCLES: 16 (RANGE 5-22)
  2. IRINOTECAN HYDROCHLORIDE. [Suspect]
     Active Substance: IRINOTECAN HYDROCHLORIDE
     Indication: BRAIN NEOPLASM
     Dosage: MEDIAN NUMBER OF CYCLES: 16 (RANGE 5-22
  3. TEMOZOLOMIDE. [Suspect]
     Active Substance: TEMOZOLOMIDE
     Indication: BRAIN NEOPLASM
     Dosage: MEDIAN NUMBER OF CYCLES: 16 (RANGE 5-22)

REACTIONS (1)
  - Lower gastrointestinal haemorrhage [Recovering/Resolving]
